FAERS Safety Report 16094751 (Version 1)
Quarter: 2019Q1

REPORT INFORMATION
  Report Type: Spontaneous
  Country: DE (occurrence: DE)
  Receive Date: 20190320
  Receipt Date: 20190320
  Transmission Date: 20190418
  Serious: Yes (Hospitalization, Other)
  Sender: FDA-Public Use
  Company Number: DE-TAKEDA-2019TUS014791

PATIENT
  Sex: Female
  Weight: 61 kg

DRUGS (1)
  1. ENTYVIO [Suspect]
     Active Substance: VEDOLIZUMAB
     Indication: CROHN^S DISEASE
     Dosage: UNK
     Route: 065
     Dates: start: 20180312

REACTIONS (7)
  - Malignant mesenteric neoplasm [Not Recovered/Not Resolved]
  - Metastases to bladder [Not Recovered/Not Resolved]
  - Metastases to reproductive organ [Not Recovered/Not Resolved]
  - Metastases to rectum [Not Recovered/Not Resolved]
  - Neoplasm malignant [Not Recovered/Not Resolved]
  - Metastases to uterus [Not Recovered/Not Resolved]
  - Adenocarcinoma of the cervix [Not Recovered/Not Resolved]

NARRATIVE: CASE EVENT DATE: 201811
